FAERS Safety Report 17016963 (Version 1)
Quarter: 2019Q4

REPORT INFORMATION
  Report Type: Spontaneous
  Country: US (occurrence: US)
  Receive Date: 20191108
  Receipt Date: 20191108
  Transmission Date: 20200122
  Serious: Yes (Disabling)
  Sender: FDA-Public Use
  Company Number: None

PATIENT
  Age: 41 Year
  Sex: Female
  Weight: 72.57 kg

DRUGS (1)
  1. MIRENA [Suspect]
     Active Substance: LEVONORGESTREL

REACTIONS (6)
  - Insomnia [None]
  - Muscle spasms [None]
  - Tension headache [None]
  - Muscle tightness [None]
  - Tinnitus [None]
  - Anxiety [None]

NARRATIVE: CASE EVENT DATE: 20190915
